FAERS Safety Report 9548280 (Version 4)
Quarter: 2013Q4

REPORT INFORMATION
  Report Type: Spontaneous
  Country: JP (occurrence: JP)
  Receive Date: 20130924
  Receipt Date: 20131003
  Transmission Date: 20140711
  Serious: Yes (Hospitalization, Other)
  Sender: FDA-Public Use
  Company Number: JP-JNJFOC-20130910021

PATIENT
  Age: 3 Decade
  Sex: Male

DRUGS (12)
  1. HALOPERIDOL DECANOATE [Suspect]
     Indication: SCHIZOPHRENIA
     Route: 030
  2. OLANZAPINE [Suspect]
     Indication: SCHIZOPHRENIA
     Route: 048
  3. OLANZAPINE [Suspect]
     Indication: SCHIZOPHRENIA
     Route: 048
  4. OLANZAPINE [Suspect]
     Indication: SCHIZOPHRENIA
     Route: 048
  5. QUETIAPINE FUMARATE [Suspect]
     Indication: SCHIZOPHRENIA
     Route: 065
  6. ZOTEPINE [Suspect]
     Indication: SCHIZOPHRENIA
     Route: 048
  7. ZOTEPINE [Suspect]
     Indication: SCHIZOPHRENIA
     Route: 048
  8. ZOTEPINE [Suspect]
     Indication: SCHIZOPHRENIA
     Route: 048
  9. ZOTEPINE [Suspect]
     Indication: SCHIZOPHRENIA
     Route: 048
  10. ZOTEPINE [Suspect]
     Indication: SCHIZOPHRENIA
     Route: 048
  11. FLUPHENAZINE [Suspect]
     Indication: SCHIZOPHRENIA
     Route: 065
  12. SODIUM VALPROATE [Concomitant]
     Indication: SCHIZOPHRENIA
     Route: 065

REACTIONS (3)
  - Suicide attempt [Unknown]
  - Schizophrenia [Unknown]
  - Insomnia [Unknown]
